FAERS Safety Report 9863485 (Version 2)
Quarter: 2014Q1

REPORT INFORMATION
  Report Type: Spontaneous
  Country: BR (occurrence: BR)
  Receive Date: 20140203
  Receipt Date: 20140203
  Transmission Date: 20141002
  Serious: Yes (Death)
  Sender: FDA-Public Use
  Company Number: BR-CUBIST PHARMACEUTICAL, INC.-2013CBST000616

PATIENT
  Sex: 0

DRUGS (33)
  1. CUBICIN [Suspect]
     Indication: ENDOCARDITIS STAPHYLOCOCCAL
     Dosage: 500 MG, QD
     Route: 042
     Dates: start: 20100716, end: 20100818
  2. CUBICIN [Suspect]
     Indication: MEDIASTINITIS
     Dosage: 6.6 MG/KG, QD
     Route: 042
     Dates: start: 20100716, end: 20100818
  3. CUBICIN [Suspect]
     Indication: OFF LABEL USE
  4. RANITIDINE [Concomitant]
     Indication: PRODUCT USED FOR UNKNOWN INDICATION
     Dosage: 150 MG, QD
     Route: 048
     Dates: start: 20100712, end: 20100818
  5. CARVEDILOL [Concomitant]
     Indication: PRODUCT USED FOR UNKNOWN INDICATION
     Dosage: 125 MG, TID
     Route: 048
     Dates: start: 20100712
  6. ENOXAPARIN [Concomitant]
     Indication: PRODUCT USED FOR UNKNOWN INDICATION
     Dosage: 40 MG, QD
     Route: 058
     Dates: start: 20100720, end: 20100804
  7. SPIRONOLACTONE [Concomitant]
     Indication: PRODUCT USED FOR UNKNOWN INDICATION
     Dosage: 100 MG, QD
     Route: 048
     Dates: end: 20100712
  8. CLOPIDOGREL [Concomitant]
     Indication: PRODUCT USED FOR UNKNOWN INDICATION
     Dosage: UNK, QD
     Route: 048
     Dates: end: 20100712
  9. ASPIRIN [Concomitant]
     Indication: PRODUCT USED FOR UNKNOWN INDICATION
     Dosage: 100 MG, QD
     Route: 048
     Dates: start: 20100712, end: 20100716
  10. AMIODARONE [Concomitant]
     Indication: PRODUCT USED FOR UNKNOWN INDICATION
     Dosage: 200 MG, QD
     Route: 048
     Dates: start: 20100712, end: 20100715
  11. GENTAMICIN [Concomitant]
     Indication: PRODUCT USED FOR UNKNOWN INDICATION
     Dosage: 80 MG, QD
     Route: 042
     Dates: start: 20100712, end: 20100716
  12. HYDRALAZINE [Concomitant]
     Indication: PRODUCT USED FOR UNKNOWN INDICATION
     Dosage: 25 MG, TID
     Route: 048
     Dates: start: 20100712, end: 20100714
  13. SIMVASTATIN [Concomitant]
     Indication: PRODUCT USED FOR UNKNOWN INDICATION
     Dosage: 20 MG, QD
     Route: 048
     Dates: start: 20100712, end: 20100714
  14. ISOSORBIDE [Concomitant]
     Indication: PRODUCT USED FOR UNKNOWN INDICATION
     Dosage: 20 MG, BID
     Route: 048
     Dates: start: 20100712, end: 20100714
  15. MEROPENEM [Concomitant]
     Indication: PRODUCT USED FOR UNKNOWN INDICATION
     Dosage: 1 G, TID
     Route: 042
     Dates: start: 20100713, end: 20100716
  16. MEROPENEM [Concomitant]
     Dosage: 1 G, TID
     Route: 042
     Dates: start: 20100724, end: 20100804
  17. RIFAMPIN [Concomitant]
     Indication: PRODUCT USED FOR UNKNOWN INDICATION
     Dosage: 300 MG, BID
     Route: 048
     Dates: start: 20100712, end: 20100718
  18. PHENYTOIN [Concomitant]
     Indication: PRODUCT USED FOR UNKNOWN INDICATION
     Dosage: UNK, INFUSION BOLUS
     Route: 040
     Dates: start: 20100716, end: 20100716
  19. PHENYTOIN [Concomitant]
     Dosage: 100 MG, TID
     Route: 042
     Dates: start: 20100716, end: 20100717
  20. NORADRENALINE                      /00127501/ [Concomitant]
     Indication: PRODUCT USED FOR UNKNOWN INDICATION
     Dosage: UNK, UNK, UNK
     Route: 042
     Dates: start: 20100716, end: 20100720
  21. MILRINONE [Concomitant]
     Indication: PRODUCT USED FOR UNKNOWN INDICATION
     Dosage: UNK UNK, UNK
     Route: 042
     Dates: start: 20100716
  22. HYDROCORTISONE [Concomitant]
     Indication: PRODUCT USED FOR UNKNOWN INDICATION
     Dosage: UNK UNK, UNK
     Route: 042
     Dates: start: 20100716, end: 20100719
  23. VASOPRESSIN [Concomitant]
     Indication: PRODUCT USED FOR UNKNOWN INDICATION
     Dosage: 80 IU, UNK
     Route: 042
     Dates: start: 20100717
  24. VASOPRESSIN [Concomitant]
     Dosage: UNK, UNK, UNK
     Route: 065
     Dates: start: 20100817
  25. DEXMEDETOMIDINE [Concomitant]
     Indication: PRODUCT USED FOR UNKNOWN INDICATION
     Dosage: UNK UNK, UNK
     Route: 042
     Dates: start: 20100721, end: 20100722
  26. NOREPINEPHRINE [Concomitant]
     Indication: PRODUCT USED FOR UNKNOWN INDICATION
     Dosage: UNK, UNK, UNK
     Route: 042
     Dates: start: 20100723
  27. RISPERIDONE [Concomitant]
     Indication: PRODUCT USED FOR UNKNOWN INDICATION
     Dosage: 0.5 G, QD
     Route: 048
     Dates: start: 20100725
  28. POLYMYXIN B SULPHATE [Concomitant]
     Indication: PRODUCT USED FOR UNKNOWN INDICATION
     Dosage: 500000 IU, BID
     Route: 042
     Dates: start: 20100727, end: 20100802
  29. POLYMYXIN B SULPHATE [Concomitant]
     Dosage: 750000 IU, BID
     Route: 042
     Dates: start: 20100816
  30. LINEZOLID [Concomitant]
     Indication: PRODUCT USED FOR UNKNOWN INDICATION
     Dosage: 600 MG, BID
     Route: 042
     Dates: start: 20100728
  31. AMPHOTERICIN B [Concomitant]
     Indication: PRODUCT USED FOR UNKNOWN INDICATION
     Dosage: 350 MG, QD
     Route: 042
     Dates: start: 20100728, end: 20100802
  32. METRONIDAZOLE [Concomitant]
     Indication: PRODUCT USED FOR UNKNOWN INDICATION
     Dosage: 500 MG, TID
     Route: 048
     Dates: start: 20100816, end: 20100818
  33. PANCURONIUM [Concomitant]
     Indication: PRODUCT USED FOR UNKNOWN INDICATION
     Dosage: UNK, UNK, UNK
     Route: 065
     Dates: start: 20100818

REACTIONS (2)
  - Sepsis [Fatal]
  - Mediastinitis [Fatal]
